FAERS Safety Report 7723002-6 (Version None)
Quarter: 2011Q3

REPORT INFORMATION
  Report Type: 
  Country: None (occurrence: None)
  Receive Date: 20110826
  Receipt Date: 20090717
  Transmission Date: 20111222
  Serious: Yes (Disabling)
  Sender: FDA-Public Use
  Company Number: APP200800438

PATIENT
  Age: 54 Year
  Sex: Male
  Weight: 111.1313 kg

DRUGS (4)
  1. CLINDAMYCIN [Concomitant]
  2. LACTATED RINGERS (FLEBOBAG RING LACT) [Concomitant]
  3. STRYKER PAIN PUMP [Suspect]
     Indication: MUSCULOSKELETAL PAIN
     Dates: start: 20060511
  4. SENSORCAINE [Suspect]
     Indication: MUSCULOSKELETAL PAIN
     Dosage: 120 ML, 0.596 CONTINUOUS VIA PAIN PUMP
     Dates: start: 20060511, end: 20060515

REACTIONS (7)
  - OSTEOARTHRITIS [None]
  - FALL [None]
  - CHONDROLYSIS [None]
  - COSTOCHONDRITIS [None]
  - MUSCULOSKELETAL PAIN [None]
  - ROTATOR CUFF SYNDROME [None]
  - HYPOAESTHESIA [None]
